FAERS Safety Report 8525274-7 (Version None)
Quarter: 2012Q3

REPORT INFORMATION
  Report Type: 
  Country: None (occurrence: None)
  Receive Date: 20120720
  Receipt Date: 20120717
  Transmission Date: 20120928
  Serious: Yes (Other)
  Sender: FDA-Public Use
  Company Number: PHHY2012IN061824

PATIENT
  Age: 60 Year
  Sex: Female

DRUGS (1)
  1. ZOLEDRONOC ACID [Suspect]
     Dosage: 5MG/100ML SOLUTION
     Route: 042
     Dates: start: 20110817

REACTIONS (3)
  - OSTEOPOROSIS [None]
  - RADIUS FRACTURE [None]
  - ARTHROPATHY [None]
